FAERS Safety Report 9745346 (Version 2)
Quarter: 2013Q4

REPORT INFORMATION
  Report Type: Spontaneous
  Country: US (occurrence: US)
  Receive Date: 20131211
  Receipt Date: 20131211
  Transmission Date: 20140711
  Serious: Yes (Other)
  Sender: FDA-Public Use
  Company Number: US-ASTRAZENECA-2013SE87286

PATIENT
  Age: 76 Year
  Sex: Female
  Weight: 52.2 kg

DRUGS (4)
  1. SYMBICORT [Suspect]
     Indication: CHRONIC OBSTRUCTIVE PULMONARY DISEASE
     Dosage: 160/4.5 2 PUFFS TWO TIMES A DAY
     Route: 055
     Dates: start: 2010
  2. ISORBIDE [Concomitant]
     Indication: CARDIAC DISORDER
     Dates: start: 2008
  3. NIFEDIPINE [Concomitant]
     Indication: BLOOD PRESSURE ABNORMAL
     Dates: start: 2008
  4. SIMVASTATIN [Concomitant]
     Indication: BLOOD CHOLESTEROL ABNORMAL
     Dates: start: 2008

REACTIONS (6)
  - Pneumonia [Recovered/Resolved]
  - Dysgeusia [Unknown]
  - Lip injury [Unknown]
  - Malaise [Unknown]
  - Circumstance or information capable of leading to medication error [Unknown]
  - Wrong technique in drug usage process [Not Recovered/Not Resolved]
